FAERS Safety Report 5609018-4 (Version None)
Quarter: 2008Q1

REPORT INFORMATION
  Report Type: 
  Country: None (occurrence: None)
  Receive Date: 20080131
  Receipt Date: 20080123
  Transmission Date: 20080703
  Serious: Yes (Other)
  Sender: FDA-Public Use
  Company Number: PHRM2008FR00713

PATIENT
  Age: 64 Year
  Sex: Female

DRUGS (3)
  1. THYROID HORMONES [Concomitant]
     Indication: HYPOTHYROIDISM
  2. STALEVO 100 [Suspect]
     Indication: PARKINSON'S DISEASE
     Route: 048
  3. MANTADIX [Concomitant]
     Route: 048

REACTIONS (2)
  - MALAISE [None]
  - SINUS BRADYCARDIA [None]
